FAERS Safety Report 8793413 (Version 1)
Quarter: 2012Q4

REPORT INFORMATION
  Report Type: 
  Country: US (occurrence: US)
  Receive Date: 20120917
  Receipt Date: 20120917
  Transmission Date: 20130627
  Serious: Yes (Other)
  Sender: FDA-Public Use
  Company Number: US-ASTRAZENECA-2012SE60601

PATIENT
  Age: 36 Year
  Sex: Female
  Weight: 70.3 kg

DRUGS (11)
  1. SEROQUEL [Suspect]
     Indication: BIPOLAR DISORDER
     Dosage: BEGAN WITH 50MG AND WAS TITRATED TO 100MG, 200, 300MG UP TO 600MG
     Route: 048
     Dates: start: 2007
  2. SEROQUEL [Suspect]
     Indication: BIPOLAR DISORDER
     Dosage: BEGAN WITH 50MG AND WAS TITRATED TO 100MG, 200, 300MG UP TO 600MG
     Route: 048
     Dates: start: 2008, end: 201208
  3. SEROQUEL [Suspect]
     Indication: BIPOLAR DISORDER
     Dosage: GENERIC
     Route: 048
     Dates: start: 20120820
  4. SEROQUEL [Suspect]
     Indication: BIPOLAR DISORDER
     Dosage: GENERIC
     Route: 048
     Dates: start: 201208
  5. SEROQUEL [Suspect]
     Indication: BIPOLAR DISORDER
     Dosage: GENERIC
     Route: 048
     Dates: start: 20120823, end: 201208
  6. SEROQUEL [Suspect]
     Indication: BIPOLAR DISORDER
     Route: 048
  7. SEROQUEL [Suspect]
     Indication: BIPOLAR DISORDER
     Route: 048
  8. LAMICTAL [Suspect]
     Indication: CONVULSION
     Dosage: 100 MG AM AND 200 MG PM
     Route: 065
     Dates: start: 2010
  9. LAMOTRIGINE [Concomitant]
     Indication: CONVULSION
     Route: 048
     Dates: start: 2001
  10. BUPROPION [Concomitant]
     Indication: ANTIDEPRESSANT THERAPY
     Route: 048
  11. BUSPIRONE [Concomitant]
     Indication: ANTIDEPRESSANT THERAPY
     Route: 048

REACTIONS (6)
  - Craniocerebral injury [Unknown]
  - Somnolence [Unknown]
  - Sedation [Unknown]
  - Lethargy [Unknown]
  - Drug ineffective [Unknown]
  - Drug hypersensitivity [Unknown]
